FAERS Safety Report 4281145-6 (Version None)
Quarter: 2004Q1

REPORT INFORMATION
  Report Type: 
  Country: None (occurrence: None)
  Receive Date: 20040127
  Receipt Date: 20040114
  Transmission Date: 20041129
  Serious: Yes (Hospitalization)
  Sender: FDA-Public Use
  Company Number: US-SHR-2002-000030

PATIENT
  Age: 44 Year
  Sex: Male
  Weight: 72.6 kg

DRUGS (9)
  1. BETASERON [Suspect]
     Indication: MULTIPLE SCLEROSIS
     Dosage: 8 MIU, EVERY 2D, SBUCUTANEOUS
     Route: 058
     Dates: start: 20020601
  2. ATIVAN [Concomitant]
  3. VICODIN [Concomitant]
  4. BACLOFEN [Concomitant]
  5. ELECTRIC STIMULATOR [Concomitant]
  6. GLUCOPHAGE [Concomitant]
  7. GLIPIZIDE [Concomitant]
  8. DETROL - SLOW RELEASE (TOLTERODINE L-TARTRATE) [Concomitant]
  9. EFFEXOR [Concomitant]

REACTIONS (15)
  - AFFECT LABILITY [None]
  - ASTHENIA [None]
  - BALANCE DISORDER [None]
  - BURNING SENSATION [None]
  - CONFUSIONAL STATE [None]
  - DEPRESSION [None]
  - DIFFICULTY IN WALKING [None]
  - DRUG INEFFECTIVE [None]
  - DYSURIA [None]
  - INSOMNIA [None]
  - MEMORY IMPAIRMENT [None]
  - MENTAL DISORDER [None]
  - MOOD SWINGS [None]
  - PYREXIA [None]
  - SUICIDAL IDEATION [None]
